FAERS Safety Report 5648750-3 (Version None)
Quarter: 2008Q1

REPORT INFORMATION
  Report Type: 
  Country: None (occurrence: None)
  Receive Date: 20080131
  Receipt Date: 20071009
  Transmission Date: 20080703
  Serious: No
  Sender: FDA-Public Use
  Company Number: US200707002017

PATIENT
  Age: 60 Year
  Sex: Female
  Weight: 95.2 kg

DRUGS (10)
  1. BYETTA [Suspect]
     Indication: TYPE 2 DIABETES MELLITUS
     Dosage: 5 UG, 10 UG,  2/D, SUBCUTANEOUS
     Route: 058
     Dates: start: 20070611, end: 20070101
  2. BYETTA [Suspect]
     Indication: TYPE 2 DIABETES MELLITUS
     Dosage: 5 UG, 10 UG,  2/D, SUBCUTANEOUS
     Route: 058
     Dates: start: 20070101
  3. EXENATIDE (EXENATIDE PEN) [Concomitant]
  4. LISINOPRIL [Concomitant]
  5. VERAPAMIL HCL (VERAPAMIL HYDROCHLORIDE) [Concomitant]
  6. XANAX/USA/ (ALPRAZOLAM) [Concomitant]
  7. WELLBUTRIN [Concomitant]
  8. VYTORIN [Concomitant]
  9. METFORMIN HCL [Concomitant]
  10. GLIPIZIDE [Concomitant]

REACTIONS (3)
  - CHEST DISCOMFORT [None]
  - NAUSEA [None]
  - WEIGHT DECREASED [None]
